FAERS Safety Report 6173085-2 (Version None)
Quarter: 2009Q2

REPORT INFORMATION
  Report Type: 
  Country: None (occurrence: None)
  Receive Date: 20090430
  Receipt Date: 20090424
  Transmission Date: 20091009
  Serious: No
  Sender: FDA-Public Use
  Company Number: US-JNJFOC-20090406543

PATIENT
  Sex: Female

DRUGS (13)
  1. FENTANYL TRANSDERMAL SYSTEM [Suspect]
     Route: 062
  2. FENTANYL TRANSDERMAL SYSTEM [Suspect]
     Indication: PAIN
     Route: 062
  3. NARCAN [Suspect]
     Indication: DRUG USE FOR UNKNOWN INDICATION
     Dosage: DOSE: ONLY ONCE/ INTRAVENOUS
     Route: 042
  4. NITROGLYCERIN [Concomitant]
     Indication: ANGINA PECTORIS
     Route: 048
  5. DARVOCET-N 100 [Concomitant]
     Indication: PAIN
     Route: 048
  6. TRAMADOL HCL [Concomitant]
     Indication: PAIN
     Route: 048
  7. FOSAMAX [Concomitant]
     Indication: OSTEOPOROSIS
     Route: 048
  8. ELAVIL [Concomitant]
     Indication: AGITATION
     Route: 048
  9. ATENOLOL [Concomitant]
     Indication: HYPERTENSION
     Route: 048
  10. COUMADIN [Concomitant]
     Indication: THROMBOSIS PROPHYLAXIS
     Route: 048
  11. CYMBALTA [Concomitant]
     Indication: DEPRESSION
     Route: 048
  12. ALLEGRA [Concomitant]
     Indication: MULTIPLE ALLERGIES
     Route: 048
  13. CALCIUM WITH VITAMIN D [Concomitant]
     Indication: MEDICAL DIET
     Route: 048

REACTIONS (6)
  - AGITATION [None]
  - BACK PAIN [None]
  - DIZZINESS [None]
  - INCORRECT DOSE ADMINISTERED [None]
  - MUSCULOSKELETAL PAIN [None]
  - SEDATION [None]
